FAERS Safety Report 11549474 (Version 1)
Quarter: 2015Q3

REPORT INFORMATION
  Report Type: Report from Study
  Country: US (occurrence: US)
  Receive Date: 20150924
  Receipt Date: 20150924
  Transmission Date: 20151125
  Serious: Yes (Death, Hospitalization, Other)
  Sender: FDA-Public Use
  Company Number: US-CORCEPT THERAPEUTICS INC.-US-2015CRT000317

PATIENT

DRUGS (4)
  1. KORLYM [Suspect]
     Active Substance: MIFEPRISTONE
     Indication: CUSHING^S SYNDROME
     Dosage: 1 DF, QD
     Route: 048
     Dates: start: 201309, end: 201503
  2. KORLYM [Suspect]
     Active Substance: MIFEPRISTONE
     Dosage: 2 DF, QD
     Route: 048
     Dates: start: 201503
  3. COUMADIN [Concomitant]
     Active Substance: WARFARIN SODIUM
     Indication: PRODUCT USED FOR UNKNOWN INDICATION
     Dosage: UNK
  4. POTASSIUM [Concomitant]
     Active Substance: POTASSIUM
     Indication: PRODUCT USED FOR UNKNOWN INDICATION
     Dosage: UNK

REACTIONS (8)
  - Urinary tract infection [Unknown]
  - Fall [Unknown]
  - Condition aggravated [Not Recovered/Not Resolved]
  - Ligament sprain [Unknown]
  - Ill-defined disorder [Not Recovered/Not Resolved]
  - Blood potassium decreased [Unknown]
  - Death [Fatal]
  - Mental impairment [Not Recovered/Not Resolved]

NARRATIVE: CASE EVENT DATE: 201411
